FAERS Safety Report 7760197-2 (Version None)
Quarter: 2011Q3

REPORT INFORMATION
  Report Type: 
  Country: None (occurrence: None)
  Receive Date: 20110919
  Receipt Date: 20110913
  Transmission Date: 20111222
  Serious: Yes (Hospitalization)
  Sender: FDA-Public Use
  Company Number: US-GLAXOSMITHKLINE-A0877041A

PATIENT
  Age: 68 Year
  Sex: Male
  Weight: 105 kg

DRUGS (14)
  1. CRESTOR [Concomitant]
  2. AMBIEN [Concomitant]
  3. GEMFIBROZIL [Concomitant]
  4. AVANDIA [Suspect]
     Indication: DIABETES MELLITUS
     Dosage: 4MG PER DAY
     Route: 048
     Dates: start: 20050101
  5. LOPID [Concomitant]
  6. ASPIRIN [Concomitant]
  7. TOPROL-XL [Concomitant]
  8. FOLTX [Concomitant]
  9. CELEXA [Concomitant]
  10. LISINOPRIL [Concomitant]
  11. AMITRIPTYLINE HCL [Concomitant]
  12. HUMALOG [Concomitant]
  13. METOPROLOL TARTRATE [Concomitant]
  14. LANTUS [Concomitant]

REACTIONS (6)
  - ISCHAEMIA [None]
  - CORONARY ARTERY DISEASE [None]
  - GAIT DISTURBANCE [None]
  - CARDIAC ARREST [None]
  - PAIN [None]
  - FLUID RETENTION [None]
